FAERS Safety Report 5637916-4 (Version None)
Quarter: 2008Q1

REPORT INFORMATION
  Report Type: 
  Country: None (occurrence: None)
  Receive Date: 20080221
  Receipt Date: 20080206
  Transmission Date: 20080703
  Serious: Yes (Hospitalization)
  Sender: FDA-Public Use
  Company Number: 2008BI003197

PATIENT
  Age: 65 Year
  Sex: Female
  Weight: 63.05 kg

DRUGS (2)
  1. AVONEX [Suspect]
     Indication: MULTIPLE SCLEROSIS
     Dosage: 30 UG; QW; IM
     Route: 030
     Dates: start: 19981101
  2. PREDNISONE TAB [Concomitant]

REACTIONS (5)
  - CONDITION AGGRAVATED [None]
  - INTERVERTEBRAL DISC DISORDER [None]
  - MULTIPLE SCLEROSIS [None]
  - NERVOUS SYSTEM DISORDER [None]
  - VERTIGO [None]
